FAERS Safety Report 5270099-1 (Version None)
Quarter: 2007Q1

REPORT INFORMATION
  Report Type: 
  Country: None (occurrence: None)
  Receive Date: 20070320
  Receipt Date: 20070307
  Transmission Date: 20070707
  Serious: Yes (Other)
  Sender: FDA-Public Use
  Company Number: US-ELI_LILLY_AND_COMPANY-US200605000980

PATIENT
  Age: 31 Year
  Sex: Female

DRUGS (4)
  1. CYMBALTA [Suspect]
     Indication: MAJOR DEPRESSION
     Dosage: 90 MG, OTHER
     Route: 048
     Dates: start: 20060221, end: 20060101
  2. CYMBALTA [Suspect]
     Dosage: 60 MG, UNK
     Route: 048
     Dates: start: 20060101, end: 20060505
  3. LEVOXYL [Concomitant]
     Indication: HYPOTHYROIDISM
     Dosage: 175 UNK, UNK
     Route: 048
  4. DHEA [Concomitant]
     Indication: DEPRESSION
     Dosage: UNK MG, UNK

REACTIONS (3)
  - ABORTION SPONTANEOUS [None]
  - DRUG EXPOSURE DURING PREGNANCY [None]
  - PREGNANCY [None]
